FAERS Safety Report 6198231-6 (Version None)
Quarter: 2009Q2

REPORT INFORMATION
  Report Type: 
  Country: None (occurrence: None)
  Receive Date: 20090519
  Receipt Date: 20090514
  Transmission Date: 20091009
  Serious: Yes (Death, Hospitalization)
  Sender: FDA-Public Use
  Company Number: SP01758

PATIENT
  Age: 77 Year
  Sex: Female
  Weight: 50.8029 kg

DRUGS (11)
  1. OSMOPREP [Suspect]
     Indication: COLONOSCOPY
     Dosage: ORAL
     Route: 048
     Dates: start: 20061112, end: 20061101
  2. OSMOPREP [Suspect]
     Indication: PREOPERATIVE CARE
     Dosage: ORAL
     Route: 048
     Dates: start: 20061112, end: 20061101
  3. LISINOPRIL [Concomitant]
  4. DIOVAN HCT [Concomitant]
  5. NORVASC [Concomitant]
  6. DIPYRIDAMOLE [Concomitant]
  7. SYNTHROID [Concomitant]
  8. XALATAN [Concomitant]
  9. TIMOPTIC [Concomitant]
  10. TYLENOL (CAPLET) [Concomitant]
  11. NEXIUM [Concomitant]

REACTIONS (24)
  - ASPIRATION [None]
  - ATELECTASIS [None]
  - BLOOD CALCIUM DECREASED [None]
  - CHEST PAIN [None]
  - DIVERTICULITIS [None]
  - DYSPNOEA [None]
  - EMPYEMA [None]
  - GALLBLADDER DISORDER [None]
  - HAEMODIALYSIS [None]
  - HYPOAESTHESIA [None]
  - LETHARGY [None]
  - NEPHROCALCINOSIS [None]
  - NOCARDIOSIS [None]
  - PARAESTHESIA [None]
  - PLEURAL EFFUSION [None]
  - PNEUMONIA [None]
  - PULMONARY MASS [None]
  - RENAL ARTERY STENOSIS [None]
  - RENAL FAILURE ACUTE [None]
  - RENAL TUBULAR NECROSIS [None]
  - RESPIRATORY ARREST [None]
  - SEPSIS [None]
  - TREMOR [None]
  - TUBULOINTERSTITIAL NEPHRITIS [None]
